FAERS Safety Report 7026656-5 (Version None)
Quarter: 2010Q4

REPORT INFORMATION
  Report Type: 
  Country: None (occurrence: None)
  Receive Date: 20101004
  Receipt Date: 20100923
  Transmission Date: 20110411
  Serious: No
  Sender: FDA-Public Use
  Company Number: US-JNJFOC-20101000175

PATIENT
  Sex: Female

DRUGS (1)
  1. INVEGA [Suspect]
     Indication: BIPOLAR DISORDER
     Route: 048

REACTIONS (3)
  - FALL [None]
  - TREMOR [None]
  - WRIST FRACTURE [None]
